FAERS Safety Report 11227530 (Version 3)
Quarter: 2019Q4

REPORT INFORMATION
  Report Type: Spontaneous
  Country: US (occurrence: US)
  Receive Date: 20150630
  Receipt Date: 20191224
  Transmission Date: 20200122
  Serious: Yes (Other)
  Sender: FDA-Public Use
  Company Number: US-PFIZER INC-2015212891

PATIENT
  Age: 62 Year
  Sex: Female
  Weight: 48 kg

DRUGS (3)
  1. LYRICA [Suspect]
     Active Substance: PREGABALIN
     Dosage: 150 MG, 3X/DAY (25MG IN THE MORNING AND 25 MG AROUND THE LUNCH TIME AND 100 MG AT BED TIME)
     Dates: start: 2015
  2. LYRICA [Suspect]
     Active Substance: PREGABALIN
     Dosage: 150 MG, 2X/DAY (50 MG IN THE MORNING AND 100 MG AT THE BED TIME)
     Dates: start: 2015
  3. LYRICA [Suspect]
     Active Substance: PREGABALIN
     Indication: FIBROMYALGIA
     Dosage: 100 MG, 1X/DAY, (AT BEDTIME)

REACTIONS (3)
  - Spinal disorder [Unknown]
  - Somnolence [Recovering/Resolving]
  - Intentional product misuse [Unknown]

NARRATIVE: CASE EVENT DATE: 2015
